FAERS Safety Report 25377767 (Version 1)
Quarter: 2025Q2

REPORT INFORMATION
  Report Type: Spontaneous
  Country: CN (occurrence: CN)
  Receive Date: 20250530
  Receipt Date: 20250530
  Transmission Date: 20250716
  Serious: Yes (Hospitalization)
  Sender: TERSERA THERAPEUTICS
  Company Number: CN-ASTRAZENECA-202505CHN019658CN

PATIENT

DRUGS (3)
  1. GOSERELIN [Suspect]
     Active Substance: GOSERELIN
     Indication: Breast cancer
     Route: 058
     Dates: start: 20250502, end: 20250502
  2. ZOLADEX [Suspect]
     Active Substance: GOSERELIN ACETATE
     Indication: Breast cancer
     Route: 065
  3. EXEMESTANE [Suspect]
     Active Substance: EXEMESTANE
     Indication: Breast cancer
     Route: 048
     Dates: start: 20250502, end: 20250519

REACTIONS (9)
  - Chest discomfort [Unknown]
  - Hiccups [Unknown]
  - Blood potassium decreased [Unknown]
  - Blood chloride decreased [Unknown]
  - Blood sodium decreased [Unknown]
  - Blood glucose increased [Unknown]
  - Vomiting [Not Recovered/Not Resolved]
  - Chest pain [Unknown]
  - Flatulence [Unknown]

NARRATIVE: CASE EVENT DATE: 20250511
